FAERS Safety Report 12179851 (Version 3)
Quarter: 2016Q2

REPORT INFORMATION
  Report Type: Report from Study
  Country: BR (occurrence: BR)
  Receive Date: 20160315
  Receipt Date: 20160512
  Transmission Date: 20160815
  Serious: Yes (Hospitalization)
  Sender: FDA-Public Use
  Company Number: PHHY2015BR151894

PATIENT
  Sex: Female
  Weight: 42 kg

DRUGS (2)
  1. EXJADE [Suspect]
     Active Substance: DEFERASIROX
     Indication: BONE MARROW FAILURE
     Dosage: 25 MG/KG, (2 DF OF 500 MG) QD
     Route: 048
     Dates: start: 2014
  2. EXJADE [Suspect]
     Active Substance: DEFERASIROX
     Dosage: 25 MG/KG, (2 DF OF 500 MG) QD
     Route: 048

REACTIONS (14)
  - Disease recurrence [Unknown]
  - Weight decreased [Not Recovered/Not Resolved]
  - Iron overload [Unknown]
  - Immunodeficiency [Unknown]
  - Asthenia [Not Recovered/Not Resolved]
  - Decreased appetite [Not Recovered/Not Resolved]
  - Bone marrow failure [Unknown]
  - Pyrexia [Unknown]
  - Gastrointestinal infection [Unknown]
  - Pain [Unknown]
  - Lethargy [Not Recovered/Not Resolved]
  - Retching [Not Recovered/Not Resolved]
  - Malaise [Unknown]
  - Diarrhoea [Not Recovered/Not Resolved]
